FAERS Safety Report 6777925-5 (Version None)
Quarter: 2010Q2

REPORT INFORMATION
  Report Type: 
  Country: None (occurrence: None)
  Receive Date: 20100618
  Receipt Date: 20100610
  Transmission Date: 20101027
  Serious: Yes (Hospitalization)
  Sender: FDA-Public Use
  Company Number: US-BIOGENIDEC-2010BI019604

PATIENT
  Age: 49 Year
  Sex: Female
  Weight: 102 kg

DRUGS (2)
  1. TYSABRI [Suspect]
     Indication: MULTIPLE SCLEROSIS
     Route: 042
     Dates: start: 20041201, end: 20050201
  2. TYSABRI [Suspect]
     Route: 042
     Dates: start: 20060801

REACTIONS (24)
  - ABSCESS ORAL [None]
  - ANAEMIA [None]
  - BACK PAIN [None]
  - BLOOD PRESSURE ABNORMAL [None]
  - CYSTITIS [None]
  - DEHYDRATION [None]
  - DUODENAL ULCER [None]
  - FUNGAL INFECTION [None]
  - GAIT DISTURBANCE [None]
  - HYPERHIDROSIS [None]
  - HYPOTENSION [None]
  - INTERVERTEBRAL DISC DEGENERATION [None]
  - MIGRAINE [None]
  - MULTIPLE SCLEROSIS RELAPSE [None]
  - MUSCLE SPASMS [None]
  - NECK PAIN [None]
  - NEURALGIA [None]
  - SEASONAL ALLERGY [None]
  - SINUSITIS [None]
  - SLEEP APNOEA SYNDROME [None]
  - SLEEP DISORDER [None]
  - STRESS [None]
  - TOOTH FRACTURE [None]
  - WHEEZING [None]
